FAERS Safety Report 7622013-9 (Version None)
Quarter: 2011Q3

REPORT INFORMATION
  Report Type: 
  Country: None (occurrence: None)
  Receive Date: 20110720
  Receipt Date: 20101215
  Transmission Date: 20111222
  Serious: Yes (Other)
  Sender: FDA-Public Use
  Company Number: US-BAYER-2010-005353

PATIENT
  Age: 40 Year
  Sex: Female

DRUGS (1)
  1. AVELOX [Suspect]
     Indication: PRODUCT USED FOR UNKNOWN INDICATION
     Dosage: UNK
     Route: 048
     Dates: start: 20101201

REACTIONS (7)
  - HYPERSENSITIVITY [None]
  - HYPOTENSION [None]
  - RASH [None]
  - SWELLING FACE [None]
  - PRURITUS [None]
  - CYANOSIS [None]
  - SKIN DISCOLOURATION [None]
